FAERS Safety Report 22079361 (Version 1)
Quarter: 2023Q1

REPORT INFORMATION
  Report Type: Spontaneous
  Country: US (occurrence: US)
  Receive Date: 20230309
  Receipt Date: 20230309
  Transmission Date: 20230417
  Serious: No
  Sender: FDA-Public Use
  Company Number: US-002147023-NVSC2023US053823

PATIENT
  Sex: Female

DRUGS (1)
  1. TIMOLOL MALEATE [Suspect]
     Active Substance: TIMOLOL MALEATE
     Indication: Product used for unknown indication
     Dosage: 0.5 %, BID
     Route: 047
     Dates: start: 202208

REACTIONS (1)
  - Skin discolouration [Unknown]
